FAERS Safety Report 9633892 (Version 1)
Quarter: 2013Q4

REPORT INFORMATION
  Report Type: Spontaneous
  Country: JP (occurrence: JP)
  Receive Date: 20131021
  Receipt Date: 20131021
  Transmission Date: 20140711
  Serious: Yes (Hospitalization, Other)
  Sender: FDA-Public Use
  Company Number: JP-JNJFOC-20131007598

PATIENT
  Age: 35 Year
  Sex: Female

DRUGS (11)
  1. RISPERDAL [Suspect]
     Indication: SCHIZOPHRENIA
     Route: 048
  2. QUETIAPINE [Suspect]
     Indication: SCHIZOPHRENIA
     Route: 048
  3. QUETIAPINE [Suspect]
     Indication: SCHIZOPHRENIA
     Route: 048
  4. ZOTEPINE [Suspect]
     Indication: SCHIZOPHRENIA
     Route: 048
  5. ZOTEPINE [Suspect]
     Indication: SCHIZOPHRENIA
     Dosage: 50-100 MG
     Route: 048
  6. BIPERIDEN HYDROCHLORIDE [Suspect]
     Indication: SCHIZOPHRENIA
     Route: 048
  7. BIPERIDEN HYDROCHLORIDE [Suspect]
     Indication: SCHIZOPHRENIA
     Route: 048
  8. PROMETHAZINE [Suspect]
     Indication: SCHIZOPHRENIA
     Route: 048
  9. PROMETHAZINE [Suspect]
     Indication: SCHIZOPHRENIA
     Route: 048
  10. ETIZOLAM [Suspect]
     Indication: SCHIZOPHRENIA
     Route: 048
  11. NITRAZEPAM [Suspect]
     Indication: SCHIZOPHRENIA
     Route: 048

REACTIONS (3)
  - Megacolon [Recovered/Resolved]
  - Schizophrenia [Unknown]
  - Constipation [Recovered/Resolved]
